FAERS Safety Report 17490222 (Version 1)
Quarter: 2020Q1

REPORT INFORMATION
  Report Type: Spontaneous
  Country: US (occurrence: US)
  Receive Date: 20200303
  Receipt Date: 20200303
  Transmission Date: 20200409
  Serious: No
  Sender: FDA-Public Use
  Company Number: US-AKORN PHARMACEUTICALS-2019AKN02239

PATIENT
  Age: 30 Year
  Sex: Female
  Weight: 97.51 kg

DRUGS (1)
  1. MYORISAN [Suspect]
     Active Substance: ISOTRETINOIN
     Indication: ACNE CYSTIC
     Dosage: 30 MG, 1X/DAY
     Route: 048
     Dates: start: 20190917, end: 20191019

REACTIONS (5)
  - Off label use [Recovered/Resolved]
  - Dry skin [Recovered/Resolved]
  - Oral herpes [Recovered/Resolved]
  - Chapped lips [Recovered/Resolved]
  - Lip pain [Recovered/Resolved]

NARRATIVE: CASE EVENT DATE: 2019
